FAERS Safety Report 14483294 (Version 1)
Quarter: 2018Q1

REPORT INFORMATION
  Report Type: Spontaneous
  Country: US (occurrence: US)
  Receive Date: 20180204
  Receipt Date: 20180204
  Transmission Date: 20180509
  Serious: No
  Sender: FDA-Public Use
  Company Number: US-GLAXOSMITHKLINE-US2018GSK018223

PATIENT
  Sex: Female

DRUGS (1)
  1. FLOVENT [Suspect]
     Active Substance: FLUTICASONE PROPIONATE

REACTIONS (2)
  - Device malfunction [Unknown]
  - Incorrect dose administered [Unknown]
